FAERS Safety Report 7778594-8 (Version None)
Quarter: 2011Q3

REPORT INFORMATION
  Report Type: 
  Country: None (occurrence: None)
  Receive Date: 20110926
  Receipt Date: 20110915
  Transmission Date: 20111222
  Serious: Yes (Hospitalization)
  Sender: FDA-Public Use
  Company Number: US-BAYER-2011-012046

PATIENT
  Age: 35 Year
  Sex: Female
  Weight: 80.272 kg

DRUGS (5)
  1. LUNESTA [Concomitant]
     Dosage: 2 MG, HS
  2. IBUPROFEN [Concomitant]
     Dosage: UNK UNK, HS
  3. ADVIL FLU + BODY ACHE [Concomitant]
     Dosage: 800 MG, TID
  4. YAZ [Suspect]
     Indication: PREMENSTRUAL SYNDROME
     Dosage: UNK
     Dates: start: 20070925, end: 20090310
  5. YAZ [Suspect]
     Indication: DYSMENORRHOEA

REACTIONS (11)
  - FATIGUE [None]
  - FEAR [None]
  - DEEP VEIN THROMBOSIS [None]
  - PULMONARY EMBOLISM [None]
  - ASTHENIA [None]
  - OEDEMA PERIPHERAL [None]
  - EMOTIONAL DISTRESS [None]
  - ANXIETY [None]
  - DYSPNOEA [None]
  - CHEST PAIN [None]
  - PAIN IN EXTREMITY [None]
